FAERS Safety Report 21439292 (Version 1)
Quarter: 2022Q4

REPORT INFORMATION
  Report Type: Spontaneous
  Country: US (occurrence: None)
  Receive Date: 20221008
  Receipt Date: 20221008
  Transmission Date: 20230113
  Serious: Yes (Hospitalization)
  Sender: FDA-Public Use
  Company Number: None

PATIENT
  Age: 32 Year
  Sex: Male
  Weight: 76 kg

DRUGS (4)
  1. CISPLATIN [Suspect]
     Active Substance: CISPLATIN
     Dates: end: 20220927
  2. FILGRASTIM [Concomitant]
     Active Substance: FILGRASTIM
     Dates: end: 20221001
  3. IFOSFAMIDE [Concomitant]
     Dates: end: 20220927
  4. TAXOL [Concomitant]
     Active Substance: PACLITAXEL
     Dates: end: 20220924

REACTIONS (7)
  - Pyrexia [None]
  - Chills [None]
  - Febrile bone marrow aplasia [None]
  - Nausea [None]
  - Hypokalaemia [None]
  - Hypomagnesaemia [None]
  - Anaemia [None]

NARRATIVE: CASE EVENT DATE: 20221001
